FAERS Safety Report 8873942 (Version 1)
Quarter: 2012Q4

REPORT INFORMATION
  Report Type: 
  Country: US (occurrence: US)
  Receive Date: 20121030
  Receipt Date: 20121030
  Transmission Date: 20130627
  Serious: Yes (Other)
  Sender: FDA-Public Use
  Company Number: CHPA2012US022216

PATIENT
  Age: 66 Year
  Sex: Male

DRUGS (1)
  1. MAALOX ANTACID/ANTIGAS MAX LIQ UNKNOWN [Suspect]
     Indication: ABDOMINAL DISCOMFORT
     Dosage: 1 to 2 TSP, PRN
     Route: 048
     Dates: end: 2011

REACTIONS (2)
  - Cardiac disorder [Not Recovered/Not Resolved]
  - Underdose [Unknown]
